FAERS Safety Report 10605601 (Version 2)
Quarter: 2014Q4

REPORT INFORMATION
  Report Type: Report from Study
  Country: NL (occurrence: NL)
  Receive Date: 20141124
  Receipt Date: 20141124
  Transmission Date: 20150529
  Serious: Yes (Hospitalization)
  Sender: FDA-Public Use
  Company Number: NL-AMGEN-NLDSL2012086743

PATIENT
  Age: 85 Year
  Sex: Female

DRUGS (1)
  1. ARANESP [Suspect]
     Active Substance: DARBEPOETIN ALFA
     Indication: PRODUCT USED FOR UNKNOWN INDICATION
     Dosage: 0.3 ML (200MCG/ML), QWK
     Route: 065

REACTIONS (5)
  - Pain in extremity [Unknown]
  - Asthenia [Unknown]
  - Hospitalisation [Unknown]
  - Drug ineffective [Unknown]
  - Fatigue [Unknown]
